FAERS Safety Report 15330565 (Version 3)
Quarter: 2018Q3

REPORT INFORMATION
  Report Type: Spontaneous
  Country: US (occurrence: US)
  Receive Date: 20180829
  Receipt Date: 20180905
  Transmission Date: 20181010
  Serious: Yes (Life-Threatening, Hospitalization)
  Sender: FDA-Public Use
  Company Number: US-BEH-2018094323

PATIENT
  Age: 68 Year
  Sex: Female
  Weight: 68.93 kg

DRUGS (1)
  1. PRIVIGEN [Suspect]
     Active Substance: HUMAN IMMUNOGLOBULIN G
     Indication: PRIMARY IMMUNODEFICIENCY SYNDROME
     Dosage: UNK UNK, MONTHLY
     Route: 065
     Dates: start: 2003, end: 201808

REACTIONS (12)
  - Flushing [Recovering/Resolving]
  - Swollen tongue [Recovering/Resolving]
  - Asthenia [Not Recovered/Not Resolved]
  - Nausea [Recovering/Resolving]
  - Vomiting [Recovering/Resolving]
  - Anaphylactic reaction [Recovering/Resolving]
  - Cough [Recovering/Resolving]
  - Pharyngeal oedema [Recovering/Resolving]
  - Wheezing [Recovering/Resolving]
  - Dizziness [Recovering/Resolving]
  - Dyspnoea [Recovering/Resolving]
  - Chills [Recovering/Resolving]

NARRATIVE: CASE EVENT DATE: 201808
